FAERS Safety Report 4719016-0 (Version None)
Quarter: 2005Q3

REPORT INFORMATION
  Report Type: 
  Country: None (occurrence: None)
  Receive Date: 20050719
  Receipt Date: 20050705
  Transmission Date: 20060218
  Serious: Yes (Hospitalization)
  Sender: FDA-Public Use
  Company Number: DE-2005-013790

PATIENT
  Age: 69 Year
  Sex: Female
  Weight: 75 kg

DRUGS (1)
  1. SOTALOL HCL [Suspect]
     Indication: ARRHYTHMIA
     Dosage: 160 MG, ORAL
     Route: 048
     Dates: start: 20050601

REACTIONS (4)
  - CONJUNCTIVITIS [None]
  - DYSPNOEA [None]
  - RASH [None]
  - RASH VESICULAR [None]
